FAERS Safety Report 5093378-X (Version None)
Quarter: 2006Q3

REPORT INFORMATION
  Report Type: 
  Country: None (occurrence: None)
  Receive Date: 20060828
  Receipt Date: 20060814
  Transmission Date: 20061208
  Serious: Yes (Death)
  Sender: FDA-Public Use
  Company Number: 2006099939

PATIENT
  Age: 18 Year
  Sex: Male

DRUGS (15)
  1. SERTRALINE [Suspect]
     Indication: CATATONIA
  2. SERTRALINE [Suspect]
     Indication: MAJOR DEPRESSION
  3. SERTRALINE [Suspect]
     Indication: PSYCHOTIC DISORDER
  4. OXAZEPAM [Suspect]
     Indication: CATATONIA
  5. OXAZEPAM [Suspect]
     Indication: MAJOR DEPRESSION
  6. OXAZEPAM [Suspect]
     Indication: PSYCHOTIC DISORDER
  7. CYAMEMAZINE (CYAMEMAZINE) [Suspect]
     Indication: CATATONIA
  8. CYAMEMAZINE (CYAMEMAZINE) [Suspect]
     Indication: MAJOR DEPRESSION
  9. CYAMEMAZINE (CYAMEMAZINE) [Suspect]
     Indication: PSYCHOTIC DISORDER
  10. TIANEPTINE (TIANEPTINE) [Suspect]
     Indication: CATATONIA
  11. TIANEPTINE (TIANEPTINE) [Suspect]
     Indication: MAJOR DEPRESSION
  12. TIANEPTINE (TIANEPTINE) [Suspect]
     Indication: PSYCHOTIC DISORDER
  13. LOPRAZOLAM (LOPRAZOLAM) [Suspect]
     Indication: CATATONIA
  14. LOPRAZOLAM (LOPRAZOLAM) [Suspect]
     Indication: MAJOR DEPRESSION
  15. LOPRAZOLAM (LOPRAZOLAM) [Suspect]
     Indication: PSYCHOTIC DISORDER

REACTIONS (24)
  - AGGRESSION [None]
  - AGITATION [None]
  - AUTONOMIC NERVOUS SYSTEM IMBALANCE [None]
  - BLOOD CREATINE PHOSPHOKINASE INCREASED [None]
  - CACHEXIA [None]
  - CATATONIA [None]
  - CIRCADIAN RHYTHM SLEEP DISORDER [None]
  - CONDITION AGGRAVATED [None]
  - CONFUSIONAL STATE [None]
  - CSF PROTEIN ABNORMAL [None]
  - DELUSION OF GRANDEUR [None]
  - DYSMORPHOPHOBIA [None]
  - DYSPNOEA [None]
  - ELECTROENCEPHALOGRAM ABNORMAL [None]
  - HYPERHIDROSIS [None]
  - MYOCLONUS [None]
  - PERSECUTORY DELUSION [None]
  - PSYCHOTIC DISORDER [None]
  - PYREXIA [None]
  - RESPIRATORY FAILURE [None]
  - SOMNOLENCE [None]
  - STUPOR [None]
  - TACHYCARDIA [None]
  - THINKING ABNORMAL [None]
